FAERS Safety Report 9771434 (Version 1)
Quarter: 2013Q4

REPORT INFORMATION
  Report Type: Report from Study
  Country: DE (occurrence: DE)
  Receive Date: 20131219
  Receipt Date: 20131219
  Transmission Date: 20140711
  Serious: Yes (Hospitalization)
  Sender: FDA-Public Use
  Company Number: DE-ROCHE-1319827

PATIENT
  Age: 69 Year
  Sex: Female
  Weight: 60.9 kg

DRUGS (3)
  1. BEVACIZUMAB [Suspect]
     Indication: OVARIAN CANCER
     Dosage: LAST DOSE PRIOR TO SAE: 11/DEC/2013
     Route: 042
     Dates: start: 20131030
  2. CARBOPLATIN [Suspect]
     Indication: OVARIAN CANCER
     Dosage: LAST DOSE PRIOR TO SAE: 11/DEC/2013
     Route: 042
     Dates: start: 20131030, end: 20131211
  3. GEMCITABINE [Suspect]
     Indication: OVARIAN CANCER
     Dosage: LAST DOSE PRIOR TO SAE: 20/NOV/2013
     Route: 042
     Dates: start: 20131030, end: 20131211

REACTIONS (1)
  - Infusion related reaction [Recovered/Resolved]
